FAERS Safety Report 14906242 (Version 5)
Quarter: 2019Q2

REPORT INFORMATION
  Report Type: Spontaneous
  Country: US (occurrence: US)
  Receive Date: 20180517
  Receipt Date: 20190401
  Transmission Date: 20190711
  Serious: Yes (Hospitalization)
  Sender: FDA-Public Use
  Company Number: US-SA-2018SA100181

PATIENT
  Age: 70 Year
  Sex: Male

DRUGS (1)
  1. LANTUS SOLOSTAR [Suspect]
     Active Substance: INSULIN GLARGINE
     Indication: TYPE 2 DIABETES MELLITUS
     Dosage: 20 DF,QD
     Route: 051
     Dates: start: 2010

REACTIONS (9)
  - Headache [Unknown]
  - Malaise [Unknown]
  - Pyrexia [Unknown]
  - Insomnia [Unknown]
  - Product dose omission [Unknown]
  - Injection site pain [Unknown]
  - Hospitalisation [Unknown]
  - Product odour abnormal [Unknown]
  - Hypersensitivity [Unknown]
